FAERS Safety Report 10056761 (Version 1)
Quarter: 2014Q2

REPORT INFORMATION
  Report Type: Spontaneous
  Country: US (occurrence: US)
  Receive Date: 20140403
  Receipt Date: 20140403
  Transmission Date: 20141212
  Serious: Yes (Other)
  Sender: FDA-Public Use
  Company Number: US-GLAXOSMITHKLINE-A1067863A

PATIENT
  Age: 40 Year
  Sex: Male

DRUGS (7)
  1. WELLBUTRIN [Suspect]
     Indication: DEPRESSION
     Route: 065
  2. XANAX [Suspect]
  3. CELEBREX [Suspect]
  4. DEPAKOTE [Suspect]
  5. LITHIUM [Suspect]
  6. SEROQUEL [Suspect]
  7. ZOLOFT [Suspect]

REACTIONS (5)
  - Suicidal ideation [Unknown]
  - Somnolence [Unknown]
  - Performance status decreased [Unknown]
  - Homicidal ideation [Unknown]
  - Adverse event [Unknown]
